FAERS Safety Report 7056620-1 (Version None)
Quarter: 2010Q4

REPORT INFORMATION
  Report Type: 
  Country: None (occurrence: None)
  Receive Date: 20101018
  Receipt Date: 20101006
  Transmission Date: 20110411
  Serious: Yes (Other)
  Sender: FDA-Public Use
  Company Number: 2010AP002145

PATIENT
  Age: 65 Year
  Sex: Male

DRUGS (9)
  1. TERBINAFINE HYDROCHLORIDE [Suspect]
     Indication: TINEA INFECTION
     Dosage: PO
     Route: 048
     Dates: start: 20100624, end: 20100722
  2. EXENATIDE (EXENATIDE) [Suspect]
  3. BENDROFLUMETHIAZIDE (BENDROFLUMETHIAZIDE) [Concomitant]
  4. CETIRIZINE HCL [Concomitant]
  5. DILTIAZEM HCL [Concomitant]
  6. METFORMIN HCL [Concomitant]
  7. OMEPRAZOLE [Concomitant]
  8. PRAVASTATIN SODIUM [Concomitant]
  9. VALSARTAN [Concomitant]

REACTIONS (2)
  - DRUG INTERACTION [None]
  - HYPOGLYCAEMIA [None]
